FAERS Safety Report 16799309 (Version 6)
Quarter: 2020Q3

REPORT INFORMATION
  Report Type: Spontaneous
  Country: US (occurrence: US)
  Receive Date: 20190912
  Receipt Date: 20200716
  Transmission Date: 20201102
  Serious: No
  Sender: FDA-Public Use
  Company Number: US-PFIZER INC-2019365573

PATIENT
  Age: 61 Year
  Sex: Male
  Weight: 96.16 kg

DRUGS (5)
  1. XANAX [Suspect]
     Active Substance: ALPRAZOLAM
     Indication: SHOCK
  2. XANAX [Suspect]
     Active Substance: ALPRAZOLAM
     Indication: SPINAL PAIN
     Dosage: 2 MG, 3X/DAY
     Route: 048
  3. ASPIRIN [ACETYLSALICYLIC ACID] [Concomitant]
     Active Substance: ASPIRIN
     Dosage: UNK
  4. XANAX [Suspect]
     Active Substance: ALPRAZOLAM
     Indication: ANXIETY
  5. LYRICA [Concomitant]
     Active Substance: PREGABALIN
     Indication: PAIN IN EXTREMITY
     Dosage: 100 MG, UNK

REACTIONS (5)
  - Headache [Unknown]
  - Abdominal pain upper [Unknown]
  - Constipation [Unknown]
  - Off label use [Unknown]
  - Drug effective for unapproved indication [Unknown]
